FAERS Safety Report 7430825-X (Version None)
Quarter: 2011Q2

REPORT INFORMATION
  Report Type: 
  Country: None (occurrence: None)
  Receive Date: 20110421
  Receipt Date: 20110418
  Transmission Date: 20111010
  Serious: Yes (Other)
  Sender: FDA-Public Use
  Company Number: DE-US-EMD SERONO, INC.-7043327

PATIENT
  Sex: Female
  Weight: 95 kg

DRUGS (1)
  1. REBIF [Suspect]
     Indication: MULTIPLE SCLEROSIS
     Route: 058
     Dates: start: 20060101

REACTIONS (5)
  - DEVICE RELATED INFECTION [None]
  - PERITONITIS [None]
  - DERMATITIS [None]
  - SCAB [None]
  - WOUND SECRETION [None]
